FAERS Safety Report 4299031-4 (Version None)
Quarter: 2004Q1

REPORT INFORMATION
  Report Type: 
  Country: None (occurrence: None)
  Receive Date: 20040217
  Receipt Date: 20040209
  Transmission Date: 20041129
  Serious: No
  Sender: FDA-Public Use
  Company Number: 2003CG01650

PATIENT
  Age: 67 Year
  Sex: Female
  Weight: 47 kg

DRUGS (1)
  1. ZESTRIL [Suspect]
     Dates: start: 19980101

REACTIONS (2)
  - TEMPORAL ARTERITIS [None]
  - WALDENSTROM'S MACROGLOBULINAEMIA [None]
